FAERS Safety Report 8886238 (Version 1)
Quarter: 2012Q4

REPORT INFORMATION
  Report Type: Report from Study
  Country: CA (occurrence: CA)
  Receive Date: 20121105
  Receipt Date: 20121105
  Transmission Date: 20130627
  Serious: Yes (Hospitalization)
  Sender: FDA-Public Use
  Company Number: CA-ROCHE-1152152

PATIENT
  Sex: Female
  Weight: 77 kg

DRUGS (9)
  1. RITUXIMAB [Suspect]
     Indication: RHEUMATOID ARTHRITIS
     Route: 042
     Dates: start: 20121012
  2. OXYNEO [Concomitant]
  3. ZOPICLONE [Concomitant]
  4. URSODIOL [Concomitant]
  5. SYNTHROID [Concomitant]
  6. ALDACTONE [Concomitant]
  7. PROPANOLOLI HYDROCHLORIDUM [Concomitant]
  8. FUROSEMIDE [Concomitant]
  9. RABEPRAZOLE [Concomitant]

REACTIONS (3)
  - Asthenia [Unknown]
  - Hypotension [Unknown]
  - Infection [Unknown]
